FAERS Safety Report 5853471-8 (Version None)
Quarter: 2008Q4

REPORT INFORMATION
  Report Type: 
  Country: None (occurrence: None)
  Receive Date: 20080820
  Receipt Date: 20080812
  Transmission Date: 20090506
  Serious: Yes (Life-Threatening, Hospitalization)
  Sender: FDA-Public Use
  Company Number: TPG2008A00907

PATIENT
  Age: 58 Year
  Sex: Male

DRUGS (1)
  1. COMPETACT (PIOGLITAZONE HYDROCHLORIDE,METFORMIN HYDROCHLORIDE) [Suspect]
     Indication: TYPE 2 DIABETES MELLITUS
     Dosage: 30 MG/METFORMIN 1700 MG, PER ORAL
     Route: 048
     Dates: start: 20080301, end: 20080601

REACTIONS (2)
  - THROMBOCYTOPENIA [None]
  - TREATMENT NONCOMPLIANCE [None]
